FAERS Safety Report 16094742 (Version 1)
Quarter: 2019Q1

REPORT INFORMATION
  Report Type: Spontaneous
  Country: US (occurrence: US)
  Receive Date: 20190218
  Receipt Date: 20190218
  Transmission Date: 20190418
  Serious: Yes (Death)
  Sender: FDA-Public Use
  Company Number: None

PATIENT
  Age: 52 Year
  Sex: Female

DRUGS (15)
  1. BENZONATATE. [Concomitant]
     Active Substance: BENZONATATE
  2. CAPECITABINE 500 MG TAB [Suspect]
     Active Substance: CAPECITABINE
     Dosage: ?          OTHER FREQUENCY:QPM 1 WK ON, 1 WK ;?
     Route: 048
  3. METOCLOPRAM [Concomitant]
     Active Substance: METOCLOPRAMIDE
  4. AMOX/K CLAV [Concomitant]
     Active Substance: AMOXICILLIN\CLAVULANATE POTASSIUM
  5. PROCTOZONE [Concomitant]
     Active Substance: HYDROCORTISONE
  6. CAPECITABINE 500 MG TAB [Suspect]
     Active Substance: CAPECITABINE
     Dosage: ?          OTHER FREQUENCY:QAM;?
     Route: 048
  7. AVASTIN [Concomitant]
     Active Substance: BEVACIZUMAB
  8. TRAMADOL HCL [Concomitant]
     Active Substance: TRAMADOL HYDROCHLORIDE
  9. LISINOPRIL AND HYDROCHLOROTHIAZIDE [Concomitant]
     Active Substance: HYDROCHLOROTHIAZIDE\LISINOPRIL
  10. AMLODIPINE [Concomitant]
     Active Substance: AMLODIPINE BESYLATE
  11. METHYLPRED [Concomitant]
     Active Substance: METHYLPREDNISOLONE
  12. MORPHINE SUL [Concomitant]
     Active Substance: MORPHINE SULFATE
  13. TRIAMT/HCTZ [Concomitant]
     Active Substance: HYDROCHLOROTHIAZIDE\TRIAMTERENE
  14. AMLODIPINE [Concomitant]
     Active Substance: AMLODIPINE BESYLATE
  15. PREDNISONE. [Concomitant]
     Active Substance: PREDNISONE

REACTIONS (1)
  - Death [None]

NARRATIVE: CASE EVENT DATE: 20190131
